FAERS Safety Report 19802232 (Version 1)
Quarter: 2021Q3

REPORT INFORMATION
  Report Type: Other
  Country: CA (occurrence: CA)
  Receive Date: 20210908
  Receipt Date: 20210908
  Transmission Date: 20211014
  Serious: Yes (Hospitalization, Other)
  Sender: FDA-Public Use
  Company Number: CA-CELLTRION INC.-2021CA011908

PATIENT

DRUGS (3)
  1. PREDNISONE. [Concomitant]
     Active Substance: PREDNISONE
  2. RITUXIMAB. [Suspect]
     Active Substance: RITUXIMAB
     Indication: HUMAN HERPES VIRUS 8 TEST POSITIVE
     Dosage: 375 MG/M2, 1 EVERY 1 WEEK
     Route: 042
  3. ETOPOSIDE. [Concomitant]
     Active Substance: ETOPOSIDE
     Dosage: 100 MG/M2
     Route: 065

REACTIONS (8)
  - Cognitive disorder [Unknown]
  - Acute myocardial infarction [Unknown]
  - Microangiopathy [Unknown]
  - Off label use [Unknown]
  - Delirium [Unknown]
  - Myocardial ischaemia [Unknown]
  - Castleman^s disease [Unknown]
  - Thrombotic thrombocytopenic purpura [Unknown]
